FAERS Safety Report 7051182-7 (Version None)
Quarter: 2010Q4

REPORT INFORMATION
  Report Type: 
  Country: None (occurrence: None)
  Receive Date: 20101019
  Receipt Date: 20101005
  Transmission Date: 20110411
  Serious: Yes (Hospitalization)
  Sender: FDA-Public Use
  Company Number: PHHY2010AU65580

PATIENT
  Sex: Female

DRUGS (1)
  1. CLOZARIL [Suspect]
     Dosage: 125MG
     Route: 048
     Dates: start: 20050818

REACTIONS (2)
  - CONFUSIONAL STATE [None]
  - UPPER RESPIRATORY TRACT INFECTION [None]
